FAERS Safety Report 10218743 (Version 2)
Quarter: 2014Q2

REPORT INFORMATION
  Report Type: Spontaneous
  Country: DE (occurrence: DE)
  Receive Date: 20140605
  Receipt Date: 20140605
  Transmission Date: 20141212
  Serious: Yes (Other)
  Sender: FDA-Public Use
  Company Number: DE-SA-2014SA063343

PATIENT
  Age: 74 Year
  Sex: Female
  Weight: 70 kg

DRUGS (6)
  1. CLEXANE [Suspect]
     Indication: THROMBOSIS PROPHYLAXIS
     Route: 058
     Dates: start: 20140510, end: 20140513
  2. DEXAMETHASONE SODIUM PHOSPHATE [Concomitant]
     Route: 048
  3. ONDANSETRON [Concomitant]
     Route: 048
  4. FENTANYL [Concomitant]
  5. EXEMESTANE [Concomitant]
     Route: 048
  6. TAVOR [Concomitant]
     Route: 048

REACTIONS (5)
  - Renal failure [Unknown]
  - Blood creatinine increased [Unknown]
  - Heparin-induced thrombocytopenia [Not Recovered/Not Resolved]
  - Urinary bladder haemorrhage [Unknown]
  - Dyspnoea [Unknown]
